FAERS Safety Report 7240541-5 (Version None)
Quarter: 2011Q1

REPORT INFORMATION
  Report Type: 
  Country: None (occurrence: None)
  Receive Date: 20110120
  Receipt Date: 20110120
  Transmission Date: 20110831
  Serious: Yes (Life-Threatening)
  Sender: FDA-Public Use
  Company Number: None

PATIENT
  Sex: Female
  Weight: 132.9039 kg

DRUGS (1)
  1. PROPOXYPHENE HYDROCHLORIDE [Suspect]
     Indication: PAIN
     Dosage: 750MG 2XDAILY ORAL
     Route: 048
     Dates: start: 20080508

REACTIONS (3)
  - PALPITATIONS [None]
  - DIZZINESS [None]
  - SYNCOPE [None]
